FAERS Safety Report 18713867 (Version 2)
Quarter: 2021Q1

REPORT INFORMATION
  Report Type: Spontaneous
  Country: US (occurrence: US)
  Receive Date: 20210107
  Receipt Date: 20210205
  Transmission Date: 20210419
  Serious: Yes (Death, Hospitalization)
  Sender: FDA-Public Use
  Company Number: US-TEVA-2020-US-1865184

PATIENT
  Age: 65 Year
  Sex: Male

DRUGS (3)
  1. TACROLIMUS. [Suspect]
     Active Substance: TACROLIMUS
     Indication: IMMUNOSUPPRESSANT DRUG THERAPY
     Route: 065
  2. PREDNISONE. [Suspect]
     Active Substance: PREDNISONE
     Indication: IMMUNOSUPPRESSANT DRUG THERAPY
     Route: 065
  3. MYCOPHENOLATE MOFETIL. [Suspect]
     Active Substance: MYCOPHENOLATE MOFETIL
     Indication: IMMUNOSUPPRESSANT DRUG THERAPY
     Route: 065

REACTIONS (16)
  - Brain abscess [Fatal]
  - Renal failure [Unknown]
  - Tenosynovitis [Unknown]
  - Urosepsis [Unknown]
  - Mycobacterium haemophilum infection [Fatal]
  - Pleural effusion [Unknown]
  - Toxoplasmosis [Unknown]
  - Escherichia infection [Unknown]
  - Generalised oedema [Unknown]
  - Clostridium difficile colitis [Unknown]
  - Osteomyelitis chronic [Unknown]
  - Acidosis [Unknown]
  - Hypoglycaemia [Unknown]
  - Cellulitis [Unknown]
  - Colitis [Unknown]
  - Septic shock [Unknown]
